FAERS Safety Report 4905302-8 (Version None)
Quarter: 2006Q1

REPORT INFORMATION
  Report Type: 
  Country: None (occurrence: None)
  Receive Date: 20060203
  Receipt Date: 20060123
  Transmission Date: 20060701
  Serious: No
  Sender: FDA-Public Use
  Company Number: 2006-137751-NL

PATIENT
  Age: 34 Year
  Sex: 0

DRUGS (3)
  1. DEXAMETHASONE SODIUM PHOSPHATE [Suspect]
     Indication: ADRENOGENITAL SYNDROME
     Dosage: 0.5 MG ALT ORAL; A FEW YEARS
     Route: 048
  2. TOPIRAMATE [Suspect]
     Indication: EPILEPSY
     Dosage: 50 MG BID ORAL
     Route: 048
     Dates: start: 20050501
  3. FLUDROCORTISONE [Concomitant]

REACTIONS (3)
  - ADRENAL INSUFFICIENCY [None]
  - DRUG INTERACTION [None]
  - MALAISE [None]
